FAERS Safety Report 9245450 (Version 1)
Quarter: 2013Q2

REPORT INFORMATION
  Report Type: Spontaneous
  Country: US (occurrence: US)
  Receive Date: 20130422
  Receipt Date: 20130422
  Transmission Date: 20140414
  Serious: Yes (Other)
  Sender: FDA-Public Use
  Company Number: US-ASTELLAS-2013US004093

PATIENT
  Sex: Female
  Weight: 87 kg

DRUGS (5)
  1. VESICARE [Suspect]
     Indication: HYPERTONIC BLADDER
     Dosage: 10 MG, UID/QD
     Route: 048
  2. POTASSIUM [Concomitant]
     Indication: BLOOD POTASSIUM DECREASED
     Dosage: 20 MG, UID/QD
     Route: 048
  3. LEVOTHYROXINE [Concomitant]
     Indication: THYROID DISORDER
     Dosage: 50 MG, UID/QD
     Route: 048
  4. MAXZIDE [Concomitant]
     Indication: FLUID RETENTION
     Dosage: 50 MG, UID/QD
     Route: 048
  5. OMNICEF                            /01130201/ [Concomitant]
     Indication: EAR INFECTION
     Dosage: 30 MG, UID/QD
     Route: 048

REACTIONS (1)
  - Bladder operation [Unknown]
